FAERS Safety Report 21162362 (Version 2)
Quarter: 2022Q3

REPORT INFORMATION
  Report Type: Spontaneous
  Country: US (occurrence: US)
  Receive Date: 20220802
  Receipt Date: 20220912
  Transmission Date: 20221027
  Serious: No
  Sender: FDA-Public Use
  Company Number: US-PFIZER INC-202201021298

PATIENT
  Age: 69 Year
  Sex: Female
  Weight: 68.95 kg

DRUGS (2)
  1. PAXLOVID [Suspect]
     Active Substance: NIRMATRELVIR\RITONAVIR
     Indication: COVID-19 treatment
     Dosage: DOES NOT KNOW PILL DOSAGES, TOOK 2 OF ONE TYPE OF PILL AND 1 OF ANOTHER TYPE OF PILL
     Dates: start: 20220715, end: 20220720
  2. LOVASTATIN [Concomitant]
     Active Substance: LOVASTATIN
     Indication: Blood cholesterol increased
     Dosage: 20 MG, 1X/DAY
     Dates: end: 20220714

REACTIONS (2)
  - COVID-19 [Unknown]
  - Disease recurrence [Unknown]

NARRATIVE: CASE EVENT DATE: 20220701
